FAERS Safety Report 22015234 (Version 1)
Quarter: 2023Q1

REPORT INFORMATION
  Report Type: Spontaneous
  Country: FR (occurrence: FR)
  Receive Date: 20230221
  Receipt Date: 20230221
  Transmission Date: 20230418
  Serious: Yes (Hospitalization, Other)
  Sender: FDA-Public Use
  Company Number: None

PATIENT
  Age: 60 Year
  Sex: Male

DRUGS (2)
  1. HEPARIN SODIUM [Suspect]
     Active Substance: HEPARIN SODIUM
     Indication: COVID-19 pneumonia
     Dosage: 25 000 IU/5 ML
     Route: 042
     Dates: start: 20210221, end: 20210302
  2. LOVENOX [Suspect]
     Active Substance: ENOXAPARIN SODIUM
     Indication: COVID-19 pneumonia
     Dosage: UNK
     Route: 058
     Dates: start: 20210216, end: 20210220

REACTIONS (4)
  - Heparin-induced thrombocytopenia [Recovered/Resolved]
  - Pulmonary embolism [Not Recovered/Not Resolved]
  - Jugular vein thrombosis [Unknown]
  - Product use in unapproved indication [Recovered/Resolved]

NARRATIVE: CASE EVENT DATE: 20210221
